FAERS Safety Report 6621108-6 (Version None)
Quarter: 2010Q1

REPORT INFORMATION
  Report Type: 
  Country: None (occurrence: None)
  Receive Date: 20100309
  Receipt Date: 20100222
  Transmission Date: 20100710
  Serious: Yes (Other)
  Sender: FDA-Public Use
  Company Number: CN-BAYER-201015002GPV

PATIENT
  Sex: Male

DRUGS (1)
  1. GLUCOBAY [Suspect]
     Indication: TYPE 2 DIABETES MELLITUS
     Dosage: UNIT DOSE: 50 MG
     Route: 048
     Dates: start: 20100101

REACTIONS (1)
  - HYPOAESTHESIA ORAL [None]
